FAERS Safety Report 24197438 (Version 1)
Quarter: 2024Q3

REPORT INFORMATION
  Report Type: Spontaneous
  Country: US (occurrence: US)
  Receive Date: 20240811
  Receipt Date: 20240811
  Transmission Date: 20241016
  Serious: Yes (Hospitalization, Other)
  Sender: GLENMARK
  Company Number: US-GLENMARK PHARMACEUTICALS-2024GMK093015

PATIENT

DRUGS (1)
  1. SEVELAMER HYDROCHLORIDE [Suspect]
     Active Substance: SEVELAMER HYDROCHLORIDE
     Indication: Product used for unknown indication
     Dosage: 2400 MILLIGRAM, TID
     Route: 065

REACTIONS (2)
  - Crystal deposit intestine [Recovering/Resolving]
  - Ischaemic enteritis [Recovering/Resolving]
